FAERS Safety Report 9397627 (Version 1)
Quarter: 2013Q3

REPORT INFORMATION
  Report Type: Spontaneous
  Country: GB (occurrence: GB)
  Receive Date: 20130712
  Receipt Date: 20130712
  Transmission Date: 20140515
  Serious: Yes (Hospitalization)
  Sender: FDA-Public Use
  Company Number: GB-ELI_LILLY_AND_COMPANY-GB201307001353

PATIENT
  Age: 28 Year
  Sex: Female

DRUGS (6)
  1. FLUOXETINE [Suspect]
     Dosage: 40 MG, QD
     Route: 048
     Dates: start: 2011
  2. OLANZAPINE [Suspect]
     Dosage: 20 MG, QD
     Route: 048
     Dates: start: 2011
  3. OLANZAPINE [Suspect]
     Dosage: 2.5 MG, QD
  4. CODEINE [Concomitant]
     Route: 048
  5. LANSOPRAZOLE [Concomitant]
     Dosage: 30 MG, BID
     Route: 048
  6. ACIDEX                             /01521901/ [Concomitant]
     Dosage: 15 ML, BID
     Route: 048

REACTIONS (3)
  - Liver disorder [Unknown]
  - Jaundice [Unknown]
  - Vomiting [Unknown]
